FAERS Safety Report 7188251-7 (Version None)
Quarter: 2010Q4

REPORT INFORMATION
  Report Type: 
  Country: None (occurrence: None)
  Receive Date: 20101222
  Receipt Date: 20100714
  Transmission Date: 20110411
  Serious: Yes (Other)
  Sender: FDA-Public Use
  Company Number: US-AMGEN-KDL424459

PATIENT

DRUGS (3)
  1. ENBREL [Suspect]
     Indication: PSORIASIS
     Dosage: 50 MG, UNK
  2. CARDIAC MEDICATION NOS [Concomitant]
     Dosage: UNK UNK, UNK
  3. CLOPIDOGREL BISULFATE [Concomitant]
     Dosage: UNK UNK, UNK

REACTIONS (1)
  - SUBCUTANEOUS ABSCESS [None]
